FAERS Safety Report 5062068-1 (Version None)
Quarter: 2006Q3

REPORT INFORMATION
  Report Type: 
  Country: None (occurrence: None)
  Receive Date: 20060726
  Receipt Date: 20050705
  Transmission Date: 20061208
  Serious: Yes (Other)
  Sender: FDA-Public Use
  Company Number: US-ROCHE-410145

PATIENT
  Age: 51 Year
  Sex: Male
  Weight: 112.5 kg

DRUGS (10)
  1. PEGASYS [Suspect]
     Dosage: ROUTE OF ADMINISTRATION REPORTED AS INJ.
     Route: 050
     Dates: end: 20041215
  2. COPEGUS [Suspect]
     Route: 048
     Dates: end: 20041215
  3. COUMADIN [Concomitant]
  4. NEXIUM [Concomitant]
  5. NEURONTIN [Concomitant]
  6. ELAVIL [Concomitant]
  7. TOPROL-XL [Concomitant]
  8. ASPIRIN [Concomitant]
  9. MULTIVITAMIN NOS [Concomitant]
  10. VITAMIN E [Concomitant]

REACTIONS (3)
  - DEEP VEIN THROMBOSIS [None]
  - ELECTROCARDIOGRAM ABNORMAL [None]
  - NEUROPATHY PERIPHERAL [None]
